FAERS Safety Report 8186549-7 (Version None)
Quarter: 2012Q1

REPORT INFORMATION
  Report Type: 
  Country: None (occurrence: None)
  Receive Date: 20120302
  Receipt Date: 20120302
  Transmission Date: 20120608
  Serious: Yes (Hospitalization, Disabling)
  Sender: FDA-Public Use
  Company Number: None

PATIENT
  Age: 90 Year
  Sex: Male
  Weight: 95.7 kg

DRUGS (2)
  1. COLCHICINE [Suspect]
  2. SIMVASTATIN [Suspect]
     Indication: HYPERLIPIDAEMIA
     Dosage: 40 MG AT BEDTIME PO
     Route: 048
     Dates: start: 20110523, end: 20120204

REACTIONS (5)
  - RENAL FAILURE CHRONIC [None]
  - MYALGIA [None]
  - RHABDOMYOLYSIS [None]
  - MYOPATHY [None]
  - MUSCULAR WEAKNESS [None]
